FAERS Safety Report 9275092 (Version 2)
Quarter: 2013Q2

REPORT INFORMATION
  Report Type: Spontaneous
  Country: JP (occurrence: JP)
  Receive Date: 20130507
  Receipt Date: 20130514
  Transmission Date: 20140414
  Serious: Yes (Other)
  Sender: FDA-Public Use
  Company Number: JP-PFIZER INC-2013141365

PATIENT
  Age: 76 Year
  Sex: Female

DRUGS (11)
  1. JZOLOFT [Suspect]
     Indication: DEPRESSION
     Dosage: 25 MG DAILY
     Route: 048
     Dates: start: 20130417, end: 20130502
  2. MYSLEE [Concomitant]
     Dosage: UNK
  3. BAYASPIRIN [Concomitant]
     Dosage: UNK
  4. ARTIST [Concomitant]
     Dosage: UNK
  5. LOXOPROFEN SODIUM [Concomitant]
     Dosage: UNK
  6. MICARDIS [Concomitant]
     Dosage: UNK
  7. DOPS [Concomitant]
     Dosage: UNK
  8. SENNOSIDES [Concomitant]
     Dosage: UNK
  9. LENDORMIN [Concomitant]
     Dosage: UNK
  10. AMLODIPINE [Concomitant]
     Dosage: UNK
  11. RISUMIC [Concomitant]
     Dosage: UNK

REACTIONS (1)
  - Fall [Not Recovered/Not Resolved]
